FAERS Safety Report 8341008-3 (Version None)
Quarter: 2012Q2

REPORT INFORMATION
  Report Type: 
  Country: None (occurrence: None)
  Receive Date: 20120502
  Receipt Date: 20120420
  Transmission Date: 20120825
  Serious: Yes (Other)
  Sender: FDA-Public Use
  Company Number: 2012SP012685

PATIENT
  Age: 66 Year
  Sex: Male
  Weight: 73 kg

DRUGS (3)
  1. ACETAMINOPHEN [Concomitant]
  2. INTRON A [Suspect]
  3. INTRON A [Suspect]
     Indication: PRODUCT USED FOR UNKNOWN INDICATION
     Dosage: 3 MIU;TIW
     Dates: start: 20110509, end: 20120105

REACTIONS (3)
  - LYMPHOMA [None]
  - COUNTERFEIT DRUG ADMINISTERED [None]
  - PRODUCT ODOUR ABNORMAL [None]
